FAERS Safety Report 8547597-8 (Version None)
Quarter: 2012Q3

REPORT INFORMATION
  Report Type: 
  Country: None (occurrence: None)
  Receive Date: 20120727
  Receipt Date: 20120405
  Transmission Date: 20120928
  Serious: No
  Sender: FDA-Public Use
  Company Number: US-ASTRAZENECA-2012SE22969

PATIENT
  Age: 44 Year
  Sex: Female
  Weight: 108.9 kg

DRUGS (3)
  1. SEROQUEL XR [Suspect]
     Indication: SLEEP DISORDER
     Route: 048
  2. SEROQUEL XR [Suspect]
     Indication: BIPOLAR DISORDER
     Route: 048
  3. LAMICTAL [Concomitant]
     Indication: BIPOLAR DISORDER

REACTIONS (3)
  - INSOMNIA [None]
  - OFF LABEL USE [None]
  - INTENTIONAL DRUG MISUSE [None]
